FAERS Safety Report 15928975 (Version 3)
Quarter: 2019Q2

REPORT INFORMATION
  Report Type: Spontaneous
  Country: US (occurrence: US)
  Receive Date: 20190206
  Receipt Date: 20190514
  Transmission Date: 20190711
  Serious: Yes (Death, Other)
  Sender: FDA-Public Use
  Company Number: US-ASTRAZENECA-2018SF33912

PATIENT
  Age: 29793 Day
  Sex: Male

DRUGS (14)
  1. PRILOSEC OTC [Suspect]
     Active Substance: OMEPRAZOLE MAGNESIUM
     Route: 048
     Dates: start: 2009, end: 2015
  2. NORVASC [Concomitant]
     Active Substance: AMLODIPINE BESYLATE
  3. HYDRALAZINE [Concomitant]
     Active Substance: HYDRALAZINE HYDROCHLORIDE
  4. PRILOSEC [Suspect]
     Active Substance: OMEPRAZOLE MAGNESIUM
     Route: 048
     Dates: start: 2005, end: 2017
  5. PROTONIX [Suspect]
     Active Substance: PANTOPRAZOLE SODIUM
     Route: 065
     Dates: start: 2005, end: 2017
  6. CEPHALEXIN. [Concomitant]
     Active Substance: CEPHALEXIN
  7. LISINOPRIL. [Concomitant]
     Active Substance: LISINOPRIL
  8. ZEBETA [Concomitant]
     Active Substance: BISOPROLOL FUMARATE
  9. DIOVAN [Concomitant]
     Active Substance: VALSARTAN
  10. SIMVASTATIN. [Concomitant]
     Active Substance: SIMVASTATIN
  11. METOPROLOL. [Concomitant]
     Active Substance: METOPROLOL
  12. ZEMPLAR [Concomitant]
     Active Substance: PARICALCITOL
  13. LASIX [Concomitant]
     Active Substance: FUROSEMIDE
  14. ASPIRIN. [Concomitant]
     Active Substance: ASPIRIN

REACTIONS (6)
  - Hyperparathyroidism secondary [Unknown]
  - Nephrogenic anaemia [Unknown]
  - Chronic kidney disease [Not Recovered/Not Resolved]
  - Death [Fatal]
  - End stage renal disease [Unknown]
  - Acute kidney injury [Unknown]

NARRATIVE: CASE EVENT DATE: 20120827
